FAERS Safety Report 6475209-6 (Version None)
Quarter: 2009Q4

REPORT INFORMATION
  Report Type: 
  Country: None (occurrence: None)
  Receive Date: 20091204
  Receipt Date: 20090803
  Transmission Date: 20100525
  Serious: Yes (Hospitalization)
  Sender: FDA-Public Use
  Company Number: US-ELI_LILLY_AND_COMPANY-US200903004008

PATIENT
  Sex: Male
  Weight: 54.422 kg

DRUGS (6)
  1. ZYPREXA [Suspect]
     Indication: ABNORMAL BEHAVIOUR
     Dosage: 2.5 MG, EACH EVENING
     Route: 048
     Dates: start: 19990101, end: 20070901
  2. DIVALPROEX SODIUM [Concomitant]
     Dates: start: 19990101
  3. MULTIVITAMINS PLUS IRON [Concomitant]
  4. XANAX [Concomitant]
     Indication: SLEEP DISORDER
     Dosage: 0.5 MG, UNK
  5. ATARAX [Concomitant]
     Indication: PRURITUS
     Dosage: 75 MG, UNK
  6. ZANAFLEX [Concomitant]
     Dosage: 4 MG, UNK

REACTIONS (3)
  - CONVULSION [None]
  - PANCREATITIS [None]
  - WEIGHT INCREASED [None]
